FAERS Safety Report 20408177 (Version 1)
Quarter: 2022Q1

REPORT INFORMATION
  Report Type: Spontaneous
  Country: US (occurrence: US)
  Receive Date: 20220201
  Receipt Date: 20220201
  Transmission Date: 20220423
  Serious: No
  Sender: FDA-Public Use
  Company Number: US-BEH-2022141315

PATIENT
  Age: 32 Year
  Sex: Female

DRUGS (1)
  1. HIZENTRA [Suspect]
     Active Substance: HUMAN IMMUNOGLOBULIN G
     Dosage: UNK
     Route: 065
     Dates: start: 20220123

REACTIONS (4)
  - Blood pressure increased [Unknown]
  - Palpitations [Unknown]
  - Flushing [Unknown]
  - Tremor [Unknown]

NARRATIVE: CASE EVENT DATE: 20220123
